FAERS Safety Report 26071774 (Version 1)
Quarter: 2025Q4

REPORT INFORMATION
  Report Type: Spontaneous
  Country: US (occurrence: US)
  Receive Date: 20251120
  Receipt Date: 20251120
  Transmission Date: 20260118
  Serious: No
  Sender: CEDIPROF
  Company Number: US-CEDIPROF, INC.-2025CED00017

PATIENT
  Age: 67 Year
  Sex: Male
  Weight: 77.098 kg

DRUGS (1)
  1. METHYLPHENIDATE HYDROCHLORIDE [Suspect]
     Active Substance: METHYLPHENIDATE HYDROCHLORIDE
     Indication: Neck pain
     Dosage: 20 MG, 2X/DAY
     Route: 065
     Dates: start: 20250813, end: 20250814

REACTIONS (3)
  - Arthralgia [Unknown]
  - Drug ineffective for unapproved indication [Recovered/Resolved]
  - Product substitution issue [Recovered/Resolved]

NARRATIVE: CASE EVENT DATE: 20250801
